FAERS Safety Report 9743142 (Version 3)
Quarter: 2015Q3

REPORT INFORMATION
  Report Type: Spontaneous
  Country: US (occurrence: US)
  Receive Date: 20131210
  Receipt Date: 20150804
  Transmission Date: 20151125
  Serious: Yes (Hospitalization)
  Sender: FDA-Public Use
  Company Number: US-GILEAD-2009-0024358

PATIENT
  Age: 65 Year
  Sex: Male
  Weight: 99.34 kg

DRUGS (10)
  1. LASIX [Concomitant]
     Active Substance: FUROSEMIDE
  2. LISINOPRIL. [Concomitant]
     Active Substance: LISINOPRIL
  3. CYMBALTA [Concomitant]
     Active Substance: DULOXETINE HYDROCHLORIDE
  4. POTASSIUM [Concomitant]
     Active Substance: POTASSIUM
  5. METOLAZONE. [Concomitant]
     Active Substance: METOLAZONE
  6. METOPROLOL [Concomitant]
     Active Substance: METOPROLOL
  7. MULTIVITAMIN [Concomitant]
     Active Substance: VITAMINS
  8. LETAIRIS [Suspect]
     Active Substance: AMBRISENTAN
     Indication: PULMONARY ARTERIAL HYPERTENSION
     Route: 048
     Dates: start: 20090406
  9. LANTUS [Concomitant]
     Active Substance: INSULIN GLARGINE
  10. ACETAZOLAMIDE. [Concomitant]
     Active Substance: ACETAZOLAMIDE

REACTIONS (2)
  - Hypervolaemia [Unknown]
  - Anaemia [Unknown]
